FAERS Safety Report 8239992-1 (Version None)
Quarter: 2012Q1

REPORT INFORMATION
  Report Type: 
  Country: None (occurrence: None)
  Receive Date: 20120328
  Receipt Date: 20120315
  Transmission Date: 20120608
  Serious: Yes (Hospitalization)
  Sender: FDA-Public Use
  Company Number: BE-JNJFOC-20111008434

PATIENT
  Sex: Female
  Weight: 56.4 kg

DRUGS (5)
  1. FENTANYL-100 [Concomitant]
  2. PLASTERS [Concomitant]
  3. ESTRADIOL [Concomitant]
     Dates: start: 20090101
  4. LIDOCAINE [Concomitant]
  5. TAPENTADOL HYDROCHLORIDE [Suspect]
     Indication: BACK PAIN
     Route: 048
     Dates: start: 20110915, end: 20111008

REACTIONS (2)
  - INJURY [None]
  - HAND FRACTURE [None]
